FAERS Safety Report 13905125 (Version 2)
Quarter: 2017Q3

REPORT INFORMATION
  Report Type: Spontaneous
  Country: US (occurrence: US)
  Receive Date: 20170825
  Receipt Date: 20170920
  Transmission Date: 20171127
  Serious: No
  Sender: FDA-Public Use
  Company Number: PHEH2017US026153

PATIENT
  Age: 77 Year
  Sex: Male
  Weight: 74.83 kg

DRUGS (1)
  1. BETAMETHASONE DIPROPIONATE. [Suspect]
     Active Substance: BETAMETHASONE DIPROPIONATE
     Indication: DERMATITIS
     Dosage: UNK, ONCE OR TWICE DAILY AS NEEDED
     Route: 061

REACTIONS (2)
  - Product physical consistency issue [Not Recovered/Not Resolved]
  - Drug ineffective [Not Recovered/Not Resolved]
